FAERS Safety Report 7132977-8 (Version None)
Quarter: 2010Q4

REPORT INFORMATION
  Report Type: 
  Country: None (occurrence: None)
  Receive Date: 20101202
  Receipt Date: 20101129
  Transmission Date: 20110411
  Serious: Yes (Hospitalization, Disabling, Other)
  Sender: FDA-Public Use
  Company Number: US-MERCK-1003USA03101

PATIENT
  Age: 52 Year
  Sex: Female
  Weight: 42 kg

DRUGS (4)
  1. FOSAMAX [Suspect]
     Indication: OSTEOPOROSIS POSTMENOPAUSAL
     Route: 048
     Dates: start: 19980101, end: 20090101
  2. FOSAMAX [Suspect]
     Route: 048
     Dates: start: 20001201, end: 20100101
  3. FOSAMAX [Suspect]
     Indication: OSTEOPOROSIS PROPHYLAXIS
     Route: 048
     Dates: start: 19980101, end: 20090101
  4. FOSAMAX [Suspect]
     Route: 048
     Dates: start: 20001201, end: 20100101

REACTIONS (43)
  - ADVERSE EVENT [None]
  - ANAL CANCER STAGE III [None]
  - ANXIETY [None]
  - AXILLARY MASS [None]
  - BLADDER IRRITATION [None]
  - BLINDNESS TRANSIENT [None]
  - BONE DISORDER [None]
  - BREAST DISORDER [None]
  - BRONCHITIS [None]
  - BURSITIS [None]
  - CYSTITIS RADIATION [None]
  - DECUBITUS ULCER [None]
  - DENTAL CARIES [None]
  - ECZEMA [None]
  - EYE DISCHARGE [None]
  - FALL [None]
  - FEMUR FRACTURE [None]
  - GENITAL RASH [None]
  - GINGIVAL BLEEDING [None]
  - GINGIVAL SWELLING [None]
  - GROIN PAIN [None]
  - HAEMANGIOMA OF LIVER [None]
  - HAEMORRHOIDAL HAEMORRHAGE [None]
  - HYPERLIPIDAEMIA [None]
  - HYPERTENSION [None]
  - INFECTION [None]
  - LOCAL SWELLING [None]
  - MIGRAINE [None]
  - MUSCLE STRAIN [None]
  - ORAL INFECTION [None]
  - OSTEOARTHRITIS [None]
  - OSTEONECROSIS OF JAW [None]
  - PAIN [None]
  - RASH [None]
  - RENAL FAILURE [None]
  - RENAL FAILURE CHRONIC [None]
  - ROAD TRAFFIC ACCIDENT [None]
  - SUPRAVENTRICULAR EXTRASYSTOLES [None]
  - TOOTH ABSCESS [None]
  - TOOTH INFECTION [None]
  - URINARY TRACT INFECTION [None]
  - VAGINAL INFECTION [None]
  - VITAMIN D DEFICIENCY [None]
